FAERS Safety Report 7470729-X (Version None)
Quarter: 2011Q2

REPORT INFORMATION
  Report Type: 
  Country: None (occurrence: None)
  Receive Date: 20110510
  Receipt Date: 20110504
  Transmission Date: 20111010
  Serious: Yes (Hospitalization)
  Sender: FDA-Public Use
  Company Number: PHHO2011FR07697

PATIENT
  Sex: Female
  Weight: 53 kg

DRUGS (8)
  1. ZELITREX [Concomitant]
  2. LUTENYL [Concomitant]
  3. BACTRIM [Concomitant]
  4. GRANOCYTE [Concomitant]
  5. IMATINIB MESYLATE [Suspect]
     Indication: ACUTE LYMPHOCYTIC LEUKAEMIA
     Dosage: 400 MG, UNK
     Route: 048
     Dates: start: 20110413, end: 20110426
  6. METHOTREXATE [Concomitant]
     Dosage: UNK
  7. CYTARABINE [Concomitant]
  8. MYOLASTAN [Concomitant]

REACTIONS (2)
  - BRONCHOPULMONARY ASPERGILLOSIS [None]
  - PNEUMONIA [None]
